FAERS Safety Report 5027581-1 (Version None)
Quarter: 2006Q2

REPORT INFORMATION
  Report Type: 
  Country: None (occurrence: None)
  Receive Date: 20060616
  Receipt Date: 20060518
  Transmission Date: 20061013
  Serious: Yes (Hospitalization)
  Sender: FDA-Public Use
  Company Number: PHBS2006JP07613

PATIENT
  Sex: Male

DRUGS (5)
  1. SYMMETREL [Suspect]
     Indication: CEREBRAL INFARCTION
     Dosage: 100 MG/D
     Route: 048
     Dates: start: 20060209, end: 20060417
  2. COAX [Suspect]
     Dosage: 2 MG/D
     Route: 048
     Dates: start: 20060209, end: 20060417
  3. FAMOTIDINE [Suspect]
     Dosage: 20 MG/D
     Route: 048
     Dates: start: 20060305, end: 20060417
  4. NORVASC [Suspect]
     Dosage: 10 MG/D
     Route: 048
     Dates: start: 20060204, end: 20060417
  5. DIOVAN [Suspect]
     Dosage: 160 MG/D
     Route: 048
     Dates: start: 20060204, end: 20060417

REACTIONS (7)
  - ALANINE AMINOTRANSFERASE INCREASED [None]
  - ASPARTATE AMINOTRANSFERASE INCREASED [None]
  - BLOOD ALKALINE PHOSPHATASE INCREASED [None]
  - BLOOD GLUCOSE INCREASED [None]
  - BLOOD LACTATE DEHYDROGENASE INCREASED [None]
  - GAMMA-GLUTAMYLTRANSFERASE INCREASED [None]
  - HEPATIC FUNCTION ABNORMAL [None]
